FAERS Safety Report 21849227 (Version 1)
Quarter: 2023Q1

REPORT INFORMATION
  Report Type: Spontaneous
  Country: US (occurrence: None)
  Receive Date: 20230111
  Receipt Date: 20230111
  Transmission Date: 20230417
  Serious: No
  Sender: FDA-Public Use
  Company Number: None

PATIENT
  Age: 62 Year
  Sex: Female
  Weight: 78.8 kg

DRUGS (2)
  1. AZACITIDINE [Suspect]
     Active Substance: AZACITIDINE
     Dates: end: 20220412
  2. VENETOCLAX [Suspect]
     Active Substance: VENETOCLAX
     Dates: end: 20220526

REACTIONS (3)
  - White blood cell count decreased [None]
  - Neutrophil count decreased [None]
  - Neutropenia [None]

NARRATIVE: CASE EVENT DATE: 20220406
